FAERS Safety Report 8622726-6 (Version None)
Quarter: 2012Q3

REPORT INFORMATION
  Report Type: 
  Country: None (occurrence: None)
  Receive Date: 20120827
  Receipt Date: 20120821
  Transmission Date: 20120928
  Serious: Yes (Hospitalization)
  Sender: FDA-Public Use
  Company Number: US-JNJFOC-20110707508

PATIENT
  Sex: Male
  Weight: 45.81 kg

DRUGS (5)
  1. AZATHIOPRINE SODIUM [Concomitant]
  2. ANTIBIOTICS [Suspect]
     Indication: INFLAMMATORY BOWEL DISEASE
  3. REMICADE [Suspect]
     Indication: INFLAMMATORY BOWEL DISEASE
     Route: 042
     Dates: start: 20110629
  4. MESALAMINE [Concomitant]
     Route: 048
  5. MESALAMINE [Concomitant]
     Route: 054

REACTIONS (2)
  - ASCITES [None]
  - CLOSTRIDIAL INFECTION [None]
